FAERS Safety Report 10557794 (Version 1)
Quarter: 2014Q4

REPORT INFORMATION
  Report Type: Spontaneous
  Country: FR (occurrence: None)
  Receive Date: 20141029
  Receipt Date: 20141029
  Transmission Date: 20150529
  Serious: Yes (Other)
  Sender: FDA-Public Use
  Company Number: 20141750

PATIENT
  Age: 48 Year
  Sex: Female

DRUGS (3)
  1. METOJECT [Suspect]
     Active Substance: METHOTREXATE SODIUM
     Indication: PSORIATIC ARTHROPATHY
     Dosage: 2 X 10 MILLIGRAM IN 1 WEEK, PARENTERAL ?
     Route: 051
     Dates: start: 20140613, end: 20140831
  2. SPECIAFOLDINE (FOLIC ACID) [Concomitant]
     Active Substance: FOLIC ACID
  3. ZIMAD (COLECALCIFEROL) [Concomitant]

REACTIONS (2)
  - Insomnia [None]
  - Sleep disorder [None]

NARRATIVE: CASE EVENT DATE: 2014
